FAERS Safety Report 15431813 (Version 4)
Quarter: 2019Q2

REPORT INFORMATION
  Report Type: Report from Study
  Country: US (occurrence: US)
  Receive Date: 20180926
  Receipt Date: 20190429
  Transmission Date: 20190711
  Serious: Yes (Hospitalization)
  Sender: FDA-Public Use
  Company Number: US-ACTELION-A-NJ2018-168267

PATIENT
  Sex: Female
  Weight: 56.69 kg

DRUGS (4)
  1. VELETRI [Suspect]
     Active Substance: EPOPROSTENOL
     Dosage: 21 NG/KG, PER MIN
     Route: 042
  2. PLAQUENIL [Concomitant]
     Active Substance: HYDROXYCHLOROQUINE SULFATE
  3. ADCIRCA [Concomitant]
     Active Substance: TADALAFIL
  4. VELETRI [Suspect]
     Active Substance: EPOPROSTENOL
     Indication: PULMONARY ARTERIAL HYPERTENSION
     Dosage: 21 NG/KG, PER MIN
     Route: 042

REACTIONS (20)
  - Anxiety [Unknown]
  - Catheter site erosion [Unknown]
  - Gastroenteritis viral [Unknown]
  - Vomiting [Not Recovered/Not Resolved]
  - Diarrhoea [Not Recovered/Not Resolved]
  - Nausea [Not Recovered/Not Resolved]
  - Weight decreased [Unknown]
  - Acne [Unknown]
  - Suspected product contamination [Unknown]
  - Catheter site erythema [Unknown]
  - Malaise [Not Recovered/Not Resolved]
  - Feeling abnormal [Unknown]
  - Product administration interrupted [Unknown]
  - Electrolyte depletion [Unknown]
  - Flushing [Unknown]
  - Palpitations [Not Recovered/Not Resolved]
  - Pain [Unknown]
  - Dyspnoea exertional [Not Recovered/Not Resolved]
  - Balance disorder [Unknown]
  - Catheter site pruritus [Unknown]
